FAERS Safety Report 12639316 (Version 1)
Quarter: 2016Q3

REPORT INFORMATION
  Report Type: Spontaneous
  Country: US (occurrence: None)
  Receive Date: 20160809
  Receipt Date: 20160809
  Transmission Date: 20161109
  Serious: Yes (Death)
  Sender: FDA-Public Use
  Company Number: None

PATIENT
  Age: 55 Year
  Sex: Male

DRUGS (3)
  1. CITALOPRAM [Suspect]
     Active Substance: CITALOPRAM HYDROBROMIDE
  2. ALCOHOL (ETHANOL) [Suspect]
     Active Substance: ALCOHOL
  3. MITRAGYNINE [Suspect]
     Active Substance: MITRAGYNINE

REACTIONS (7)
  - Homicide [None]
  - Traumatic lung injury [None]
  - Aortic injury [None]
  - Suicidal ideation [None]
  - Alcoholism [None]
  - Gun shot wound [None]
  - Chest injury [None]

NARRATIVE: CASE EVENT DATE: 20150327
